FAERS Safety Report 6328877-3 (Version None)
Quarter: 2009Q3

REPORT INFORMATION
  Report Type: 
  Country: None (occurrence: None)
  Receive Date: 20090826
  Receipt Date: 20090820
  Transmission Date: 20100115
  Serious: Yes (Other)
  Sender: FDA-Public Use
  Company Number: US-JNJCH-2009022611

PATIENT
  Age: 36 Year
  Sex: Male
  Weight: 95.3 kg

DRUGS (1)
  1. LISTERINE VANILLA MINT [Suspect]
     Indication: DENTAL DISORDER PROPHYLAXIS
     Dosage: TEXT:1/2 TO 2/3 OF A CAPFUL ONCE PER DAY
     Route: 050
     Dates: start: 20090818, end: 20090819

REACTIONS (1)
  - ANAPHYLACTIC REACTION [None]
